FAERS Safety Report 4761095-9 (Version None)
Quarter: 2005Q3

REPORT INFORMATION
  Report Type: 
  Country: None (occurrence: None)
  Receive Date: 20050905
  Receipt Date: 20050805
  Transmission Date: 20060218
  Serious: Yes (Hospitalization)
  Sender: FDA-Public Use
  Company Number: FR-RB-1946-2005

PATIENT
  Age: 30 Year
  Sex: Female
  Weight: 58 kg

DRUGS (8)
  1. BUPRENORPHINE HCL [Suspect]
     Indication: DRUG USE FOR UNKNOWN INDICATION
     Dosage: ANARCHIC DOSES
     Route: 042
     Dates: start: 19950601, end: 20030601
  2. HEROIN [Suspect]
     Dosage: IRREGULAR INTAKES
     Route: 042
     Dates: start: 19950101, end: 20030101
  3. AMFETAMINE [Suspect]
     Dosage: IRREGULAR INTAKES
     Route: 042
     Dates: start: 19950101, end: 20030101
  4. METAMFETAMINE [Suspect]
     Dosage: IRREGULAR INTAKES
     Route: 042
     Dates: start: 19950101, end: 20030101
  5. COCAINE [Suspect]
     Dosage: UNKNOWN DOSAGE
     Route: 065
     Dates: start: 19950101, end: 20030101
  6. MEDICINALPRODUCT NOT SPECIFIED BY SENDER [Concomitant]
     Indication: DRUG USE FOR UNKNOWN INDICATION
     Dosage: ANARCHID USE
     Route: 065
  7. METHADONE HCL [Concomitant]
     Indication: DRUG DEPENDENCE
     Route: 065
  8. FLUNITRAZEPAM [Concomitant]
     Indication: DRUG DEPENDENCE
     Route: 048

REACTIONS (5)
  - DRUG SCREEN POSITIVE [None]
  - INFECTION [None]
  - INTENTIONAL MISUSE [None]
  - LOCALISED INFECTION [None]
  - SKIN ULCER [None]
